FAERS Safety Report 8470572-9 (Version None)
Quarter: 2012Q2

REPORT INFORMATION
  Report Type: 
  Country: None (occurrence: None)
  Receive Date: 20120627
  Receipt Date: 20120622
  Transmission Date: 20120825
  Serious: Yes (Other)
  Sender: FDA-Public Use
  Company Number: PHHY2012DE053169

PATIENT
  Age: 17 Year
  Sex: Male

DRUGS (2)
  1. SEROQUEL [Interacting]
     Indication: PSYCHOTIC DISORDER
     Dosage: UNK UKN, UNK
     Route: 048
     Dates: start: 20120101
  2. TRILEPTAL [Suspect]
     Indication: CONVULSION
     Dosage: 900 MG, BID
     Route: 048
     Dates: start: 20090101

REACTIONS (5)
  - ANTICONVULSANT DRUG LEVEL DECREASED [None]
  - PARANOIA [None]
  - CONVULSION [None]
  - DRUG INTERACTION [None]
  - PSYCHOTIC DISORDER [None]
